FAERS Safety Report 8330009-7 (Version None)
Quarter: 2012Q2

REPORT INFORMATION
  Report Type: 
  Country: None (occurrence: None)
  Receive Date: 20120502
  Receipt Date: 20100208
  Transmission Date: 20120825
  Serious: No
  Sender: FDA-Public Use
  Company Number: US-TEVA-2009029788

PATIENT
  Sex: Female
  Weight: 58.112 kg

DRUGS (5)
  1. NUVIGIL [Suspect]
     Indication: MULTIPLE SCLEROSIS
     Dosage: 150 MILLIGRAM;
     Route: 048
     Dates: start: 20091214
  2. NUVIGIL [Suspect]
     Indication: FATIGUE
  3. CYMBALTA [Concomitant]
  4. FENTANYL [Concomitant]
     Dates: start: 20091214
  5. VERAPAMIL [Concomitant]
     Dates: start: 20090101

REACTIONS (4)
  - NAUSEA [None]
  - MEMORY IMPAIRMENT [None]
  - LETHARGY [None]
  - DRUG INEFFECTIVE FOR UNAPPROVED INDICATION [None]
